FAERS Safety Report 20947254 (Version 1)
Quarter: 2022Q2

REPORT INFORMATION
  Report Type: Report from Study
  Country: US (occurrence: US)
  Receive Date: 20220610
  Receipt Date: 20220610
  Transmission Date: 20220721
  Serious: Yes (Other)
  Sender: FDA-Public Use
  Company Number: US-JAZZ-2022-US-019706

PATIENT
  Sex: Female

DRUGS (15)
  1. XYREM [Suspect]
     Active Substance: SODIUM OXYBATE
     Indication: Narcolepsy
     Dosage: UNK
     Route: 048
  2. XYREM [Suspect]
     Active Substance: SODIUM OXYBATE
     Indication: Cataplexy
  3. MINERALS\VITAMINS [Concomitant]
     Active Substance: MINERALS\VITAMINS
     Dosage: UNK
     Dates: start: 20140331
  4. FIBER TABS [Concomitant]
     Active Substance: CALCIUM POLYCARBOPHIL
     Dosage: UNK
     Dates: start: 20141020
  5. ATORVASTATIN [Concomitant]
     Active Substance: ATORVASTATIN
     Dosage: UNK
     Dates: start: 20190401
  6. TRETINOIN [Concomitant]
     Active Substance: TRETINOIN
     Dosage: 0.05% CREAM
     Dates: start: 20210819
  7. TRETINOIN [Concomitant]
     Active Substance: TRETINOIN
     Dosage: 0.025% CREAM
  8. FENTANYL [Concomitant]
     Active Substance: FENTANYL
     Dosage: 1,000MCG/100-0.9%NACL
     Dates: start: 20220601
  9. PROPOFOL [Concomitant]
     Active Substance: PROPOFOL
     Dosage: 1,000 MG/100 ML VIAL
     Dates: start: 20220601
  10. MIDAZOLAM HYDROCHLORIDE [Concomitant]
     Active Substance: MIDAZOLAM HYDROCHLORIDE
     Dosage: VIAL
     Dates: start: 20220601
  11. PROPARACAINE HYDROCHLORIDE [Concomitant]
     Active Substance: PROPARACAINE HYDROCHLORIDE
     Dosage: UNK
     Dates: start: 20220601
  12. MOXIFLOXACIN [Concomitant]
     Active Substance: MOXIFLOXACIN
     Dosage: UNK
     Dates: start: 20220531
  13. PROLENSA [Concomitant]
     Active Substance: BROMFENAC SODIUM
     Dosage: UNK
     Dates: start: 20220601
  14. PREDNISOLONE [Concomitant]
     Active Substance: PREDNISOLONE
     Dosage: UNK
     Dates: start: 20220601
  15. TROPICAMIDE [Concomitant]
     Active Substance: TROPICAMIDE
     Dosage: UNK
     Dates: start: 20220601

REACTIONS (1)
  - Eye disorder [Unknown]
